FAERS Safety Report 4976704-9 (Version None)
Quarter: 2006Q2

REPORT INFORMATION
  Report Type: 
  Country: None (occurrence: None)
  Receive Date: 20060418
  Receipt Date: 20060418
  Transmission Date: 20061013
  Serious: Yes (Other)
  Sender: FDA-Public Use
  Company Number: None

PATIENT
  Sex: Female

DRUGS (2)
  1. BOTOX [Suspect]
     Indication: TEMPOROMANDIBULAR JOINT SYNDROME
  2. STEROID [Suspect]
     Indication: TEMPOROMANDIBULAR JOINT SYNDROME

REACTIONS (2)
  - DYSPHAGIA [None]
  - ILL-DEFINED DISORDER [None]
